FAERS Safety Report 25487727 (Version 1)
Quarter: 2025Q2

REPORT INFORMATION
  Report Type: Spontaneous
  Country: US (occurrence: US)
  Receive Date: 20250627
  Receipt Date: 20250627
  Transmission Date: 20250716
  Serious: Yes (Hospitalization)
  Sender: PRINSTON PHARMACEUTICAL
  Company Number: US-PRINSTON PHARMACEUTICAL INC.-2025PRN00204

PATIENT
  Age: 60 Year
  Sex: Female
  Weight: 68.027 kg

DRUGS (3)
  1. LISINOPRIL [Suspect]
     Active Substance: LISINOPRIL
     Indication: Hypertension
     Dosage: 25 MG, 1X/DAY (ONE TABLET DAILY IN THE MORNING)
     Route: 048
     Dates: start: 2015, end: 20250612
  2. PAXIL [Concomitant]
     Active Substance: PAROXETINE HYDROCHLORIDE
  3. AMLODIPINE [Concomitant]
     Active Substance: AMLODIPINE BESYLATE

REACTIONS (6)
  - Hospitalisation [Unknown]
  - Oral mucosal blistering [Recovering/Resolving]
  - Swelling face [Recovering/Resolving]
  - Mouth swelling [Recovering/Resolving]
  - Speech disorder [Recovering/Resolving]
  - Unevaluable event [Unknown]

NARRATIVE: CASE EVENT DATE: 20250601
